FAERS Safety Report 11188103 (Version 1)
Quarter: 2015Q2

REPORT INFORMATION
  Report Type: Spontaneous
  Country: US (occurrence: US)
  Receive Date: 20150615
  Receipt Date: 20150615
  Transmission Date: 20150821
  Serious: No
  Sender: FDA-Public Use
  Company Number: US-JNJFOC-20150517922

PATIENT
  Age: 24 Year
  Sex: Male
  Weight: 131.54 kg

DRUGS (2)
  1. TEGRETOL [Concomitant]
     Active Substance: CARBAMAZEPINE
     Indication: ASPERGER^S DISORDER
     Route: 048
     Dates: start: 2005
  2. INVEGA SUSTENNA [Suspect]
     Active Substance: PALIPERIDONE PALMITATE
     Indication: ASPERGER^S DISORDER
     Route: 030
     Dates: start: 201501

REACTIONS (3)
  - Drug dose omission [Unknown]
  - Product use issue [Unknown]
  - Product physical issue [Unknown]

NARRATIVE: CASE EVENT DATE: 201501
